FAERS Safety Report 9816118 (Version 3)
Quarter: 2014Q1

REPORT INFORMATION
  Report Type: Spontaneous
  Country: PL (occurrence: PL)
  Receive Date: 20140114
  Receipt Date: 20140205
  Transmission Date: 20141002
  Serious: Yes (Death, Life-Threatening, Hospitalization)
  Sender: FDA-Public Use
  Company Number: PL-JNJFOC-20140104432

PATIENT
  Age: 33 Year
  Sex: Male
  Weight: 80 kg

DRUGS (2)
  1. STELARA [Suspect]
     Indication: PSORIASIS
     Route: 058
     Dates: start: 20130920, end: 20130920
  2. STELARA [Suspect]
     Indication: PSORIASIS
     Route: 058
     Dates: start: 20130823

REACTIONS (8)
  - Respiratory failure [Fatal]
  - Cardiac failure [Fatal]
  - Renal failure [Fatal]
  - Pneumonia [Fatal]
  - Cardiac infection [Fatal]
  - Erythrodermic psoriasis [Not Recovered/Not Resolved]
  - Psoriasis [Not Recovered/Not Resolved]
  - Hepatic enzyme increased [Unknown]
